FAERS Safety Report 25645528 (Version 3)
Quarter: 2025Q4

REPORT INFORMATION
  Report Type: Spontaneous
  Country: AU (occurrence: AU)
  Receive Date: 20250805
  Receipt Date: 20251105
  Transmission Date: 20260118
  Serious: Yes (Other)
  Sender: MYLAN
  Company Number: AU-MYLANLABS-2025M1066084

PATIENT
  Sex: Female

DRUGS (11)
  1. CLOZARIL [Suspect]
     Active Substance: CLOZAPINE
     Indication: Schizophrenia
     Dosage: 300 MILLIGRAM, PM
     Dates: start: 2009
  2. CLOZARIL [Suspect]
     Active Substance: CLOZAPINE
     Indication: Autoimmune thyroiditis
     Dosage: 300 MILLIGRAM
  3. METFORMIN [Concomitant]
     Active Substance: METFORMIN HYDROCHLORIDE
     Dosage: 250 MILLIGRAM, AM
  4. METFORMIN [Concomitant]
     Active Substance: METFORMIN HYDROCHLORIDE
     Dosage: 500 MILLIGRAM, PM
  5. THYROXINE [Concomitant]
     Active Substance: LEVOTHYROXINE
     Dosage: 75 MILLIGRAM, AM
  6. FLUOXETINE [Concomitant]
     Active Substance: FLUOXETINE HYDROCHLORIDE
     Dosage: 40 MILLIGRAM, AM
  7. VITAMIN D [Concomitant]
     Active Substance: VITAMIN D NOS
     Dosage: 1 DOSAGE FORM, AM (ONE TABLET MANE)
  8. Coloxyl [Concomitant]
     Dosage: UNK UNK, PM (2 TABS NOCTE)
  9. ASCORBIC ACID\FERROUS SULFATE [Concomitant]
     Active Substance: ASCORBIC ACID\FERROUS SULFATE
     Dosage: UNK, AM
  10. COLLAGEN [Concomitant]
     Active Substance: COLLAGEN
     Dosage: UNK, PRN (SELF-MEDICATED)
  11. MOVICOL [Concomitant]
     Active Substance: POLYETHYLENE GLYCOL 3350\POTASSIUM CHLORIDE\SODIUM BICARBONATE\SODIUM CHLORIDE
     Dosage: UNK, BID (1-2 SACHETS)

REACTIONS (6)
  - Pericardial effusion [Unknown]
  - Hallucination [Unknown]
  - Dizziness [Unknown]
  - Dyspnoea exertional [Unknown]
  - Iron deficiency [Unknown]
  - Left ventricular hypertrophy [Unknown]
